FAERS Safety Report 11236904 (Version 1)
Quarter: 2015Q3

REPORT INFORMATION
  Report Type: Spontaneous
  Country: US (occurrence: US)
  Receive Date: 20150703
  Receipt Date: 20150703
  Transmission Date: 20151125
  Serious: No
  Sender: FDA-Public Use
  Company Number: US-TAKEDA-2015TUS007244

PATIENT
  Sex: Female
  Weight: 99.32 kg

DRUGS (1)
  1. CONTRAVE [Suspect]
     Active Substance: BUPROPION HYDROCHLORIDE\NALTREXONE HYDROCHLORIDE
     Indication: OBESITY
     Dosage: 1 DF, QD IN MORNING
     Route: 048
     Dates: start: 20150527

REACTIONS (3)
  - Hunger [Recovered/Resolved]
  - Drug ineffective [Recovering/Resolving]
  - Frequent bowel movements [Not Recovered/Not Resolved]
